FAERS Safety Report 4653788-9 (Version None)
Quarter: 2005Q2

REPORT INFORMATION
  Report Type: 
  Country: None (occurrence: None)
  Receive Date: 20050404
  Receipt Date: 20041118
  Transmission Date: 20051028
  Serious: No
  Sender: FDA-Public Use
  Company Number: US_0411108324

PATIENT
  Age: 32 Year
  Sex: Female

DRUGS (4)
  1. CYMBALTA (DULOEXTINE HYDROCHLORIDE) [Suspect]
     Indication: DEPRESSION
     Dosage: 30 MG DAY
     Dates: start: 20041118
  2. SYNTHROID [Concomitant]
  3. CYTOMEL [Concomitant]
  4. CALCIUM GLUCONATE [Concomitant]

REACTIONS (3)
  - FEELING ABNORMAL [None]
  - THINKING ABNORMAL [None]
  - TREMOR [None]
